FAERS Safety Report 8232954-X (Version None)
Quarter: 2012Q1

REPORT INFORMATION
  Report Type: 
  Country: None (occurrence: None)
  Receive Date: 20120325
  Receipt Date: 20120318
  Transmission Date: 20120608
  Serious: No
  Sender: FDA-Public Use
  Company Number: US-BAYER-2012-028002

PATIENT

DRUGS (3)
  1. SODIUM BICARBONATE [Suspect]
     Indication: HEADACHE
     Route: 048
  2. ALEVE (CAPLET) [Suspect]
     Indication: HEADACHE
     Dosage: 2 DF, UNK
     Route: 048
  3. ACETAMINOPHEN [Concomitant]

REACTIONS (1)
  - HEADACHE [None]
